FAERS Safety Report 4303750-0 (Version None)
Quarter: 2004Q1

REPORT INFORMATION
  Report Type: 
  Country: None (occurrence: None)
  Receive Date: 20040223
  Receipt Date: 20040217
  Transmission Date: 20041129
  Serious: Yes (Hospitalization)
  Sender: FDA-Public Use
  Company Number: USA-2004-0013181

PATIENT
  Age: 76 Year
  Sex: Female

DRUGS (3)
  1. CEFDITOREN PIVOXIL (SIMILAR TO NDA 21-222) (CEFDITOREN PIVOXIL) [Suspect]
     Indication: UPPER RESPIRATORY TRACT INFLAMMATION
     Dosage: BID, ORAL
     Route: 048
  2. FLAVERIC (BENPROPERINE PHOSPHATE) [Concomitant]
  3. ANTOBRON (AMBROXOL HYDROCHLORIDE) [Concomitant]

REACTIONS (1)
  - RESPIRATORY FAILURE [None]
